FAERS Safety Report 9437550 (Version 2)
Quarter: 2013Q3

REPORT INFORMATION
  Report Type: Spontaneous
  Country: US (occurrence: US)
  Receive Date: 20130802
  Receipt Date: 20130828
  Transmission Date: 20140515
  Serious: No
  Sender: FDA-Public Use
  Company Number: US-009507513-1308USA000966

PATIENT
  Sex: Male
  Weight: 143.5 kg

DRUGS (1)
  1. CLARITIN [Suspect]
     Indication: SEASONAL ALLERGY
     Dosage: UNK, UNKNOWN
     Route: 048

REACTIONS (3)
  - Hepatitis B surface antibody negative [Unknown]
  - Ear operation [Unknown]
  - Ear discomfort [Unknown]
